FAERS Safety Report 5199486-7 (Version None)
Quarter: 2006Q4

REPORT INFORMATION
  Report Type: 
  Country: None (occurrence: None)
  Receive Date: 20061229
  Receipt Date: 20061218
  Transmission Date: 20070319
  Serious: Yes (Hospitalization)
  Sender: FDA-Public Use
  Company Number: TRP_0900_2006

PATIENT
  Age: 55 Year
  Sex: Male

DRUGS (9)
  1. RIBASPHERE [Suspect]
     Indication: HEPATITIS C
     Dosage: DF PO
     Route: 048
     Dates: start: 20060201
  2. PEG-INTRON [Suspect]
     Indication: HEPATITIS C
     Dosage: DF SC
     Route: 058
     Dates: start: 20060201
  3. AMANTADINE HCL [Concomitant]
  4. CLONAZEPAM [Concomitant]
  5. DUONEB [Concomitant]
  6. EFFEXOR XR [Concomitant]
  7. FORADIL [Concomitant]
  8. LAMICTAL [Concomitant]
  9. VITAPLEX [Concomitant]

REACTIONS (8)
  - BRONCHITIS [None]
  - DRUG INEFFECTIVE [None]
  - FATIGUE [None]
  - HEADACHE [None]
  - LOSS OF CONSCIOUSNESS [None]
  - NERVOUSNESS [None]
  - PNEUMONIA [None]
  - TREMOR [None]
